FAERS Safety Report 16729676 (Version 1)
Quarter: 2019Q3

REPORT INFORMATION
  Report Type: Spontaneous
  Country: US (occurrence: US)
  Receive Date: 20190822
  Receipt Date: 20190822
  Transmission Date: 20191005
  Serious: No
  Sender: FDA-Public Use
  Company Number: US-PFIZER INC-2019356901

PATIENT
  Age: 20 Year
  Sex: Female
  Weight: 104.31 kg

DRUGS (2)
  1. GENOTROPIN [Suspect]
     Active Substance: SOMATROPIN
     Indication: IMMUNODEFICIENCY
     Dosage: 0.2 MG, DAILY
  2. BREO ELLIPTA [Concomitant]
     Active Substance: FLUTICASONE FUROATE\VILANTEROL TRIFENATATE
     Indication: ASTHMA
     Dosage: UNK UNK, 1X/DAY, (DOSAGE: 200 MCG/25, ONCE EVERY MORNING)

REACTIONS (5)
  - Off label use [Unknown]
  - Product use in unapproved indication [Unknown]
  - Product dose omission [Unknown]
  - Weight decreased [Unknown]
  - Device breakage [Unknown]
